FAERS Safety Report 7117171 (Version 19)
Quarter: 2024Q4

REPORT INFORMATION
  Report Type: Spontaneous
  Country: CA (occurrence: CA)
  Receive Date: 20090917
  Receipt Date: 20241129
  Transmission Date: 20250115
  Serious: Yes (Other)
  Sender: BRISTOL-MYERS SQUIBB COMPANY
  Company Number: CA-BRISTOL-MYERS SQUIBB COMPANY-14780902

PATIENT
  Age: 52 Year
  Sex: Male

DRUGS (71)
  1. SUSTIVA [Suspect]
     Active Substance: EFAVIRENZ
     Indication: HIV infection
     Dosage: UNK
     Route: 048
  2. VIDEX EC [Suspect]
     Active Substance: DIDANOSINE
     Indication: HIV infection
     Route: 048
  3. VIDEX EC [Suspect]
     Active Substance: DIDANOSINE
     Dosage: CAPSULE, ENTERICCOATED
     Route: 048
  4. VIDEX EC [Suspect]
     Active Substance: DIDANOSINE
     Dosage: CAPSULE, ENTERIC COATED
     Route: 048
  5. ZERIT [Suspect]
     Active Substance: STAVUDINE
     Indication: HIV infection
  6. DIDANOSINE [Suspect]
     Active Substance: DIDANOSINE
     Indication: HIV infection
     Dosage: UNK
  7. DIDANOSINE [Suspect]
     Active Substance: DIDANOSINE
     Dosage: UNK
     Route: 048
  8. STAVUDINE [Suspect]
     Active Substance: STAVUDINE
     Indication: HIV infection
     Dosage: UNK
     Route: 048
  9. EFAVIRENZ [Suspect]
     Active Substance: EFAVIRENZ
     Indication: HIV infection
     Route: 048
  10. EFAVIRENZ [Suspect]
     Active Substance: EFAVIRENZ
     Route: 048
  11. ATAZANAVIR SULFATE [Suspect]
     Active Substance: ATAZANAVIR SULFATE
     Indication: HIV infection
     Route: 048
  12. ATAZANAVIR SULFATE [Suspect]
     Active Substance: ATAZANAVIR SULFATE
     Indication: Antiretroviral therapy
  13. ATAZANAVIR SULFATE [Suspect]
     Active Substance: ATAZANAVIR SULFATE
  14. VIRAMUNE XR [Concomitant]
     Active Substance: NEVIRAPINE
     Indication: HIV infection
     Dosage: TABLET (EXTENDEDRELEASE)
     Route: 048
  15. TENOFOVIR [Concomitant]
     Active Substance: TENOFOVIR
     Indication: HIV infection
     Dosage: UNK
  16. TENOFOVIR [Concomitant]
     Active Substance: TENOFOVIR
     Dosage: UNK
     Route: 048
  17. INDINAVIR [Concomitant]
     Active Substance: INDINAVIR
     Indication: HIV infection
  18. INDINAVIR [Concomitant]
     Active Substance: INDINAVIR
     Route: 048
  19. DELAVIRDINE [Concomitant]
     Active Substance: DELAVIRDINE
     Indication: HIV infection
     Dosage: UNK
  20. ABACAVIR [Concomitant]
     Active Substance: ABACAVIR
     Indication: HIV infection
     Dosage: UNK
  21. ZIDOVUDINE [Concomitant]
     Active Substance: ZIDOVUDINE
     Indication: HIV infection
     Route: 048
  22. ZIDOVUDINE [Concomitant]
     Active Substance: ZIDOVUDINE
  23. ZIAGEN [Concomitant]
     Active Substance: ABACAVIR SULFATE
     Indication: Product used for unknown indication
     Dosage: UNK
     Route: 048
  24. ZIAGEN [Concomitant]
     Active Substance: ABACAVIR SULFATE
  25. ZIAGEN [Concomitant]
     Active Substance: ABACAVIR SULFATE
     Route: 048
  26. ZIAGEN [Concomitant]
     Active Substance: ABACAVIR SULFATE
  27. VIREAD [Concomitant]
     Active Substance: TENOFOVIR DISOPROXIL FUMARATE
     Indication: HIV infection
     Route: 048
  28. VIRAMUNE [Concomitant]
     Active Substance: NEVIRAPINE
     Indication: HIV infection
     Route: 048
  29. VIRACEPT [Concomitant]
     Active Substance: NELFINAVIR MESYLATE
     Indication: HIV infection
     Dosage: UNK
  30. TENOFOVIR DISOPROXIL FUMARATE [Concomitant]
     Active Substance: TENOFOVIR DISOPROXIL FUMARATE
     Indication: HIV infection
     Dosage: UNK
     Route: 048
  31. SAQUINAVIR [Concomitant]
     Active Substance: SAQUINAVIR
     Indication: HIV infection
     Dosage: UNK
     Route: 048
  32. RITONAVIR [Concomitant]
     Active Substance: RITONAVIR
     Indication: HIV infection
  33. RITONAVIR [Concomitant]
     Active Substance: RITONAVIR
  34. RESCRIPTOR [Concomitant]
     Active Substance: DELAVIRDINE MESYLATE
     Indication: HIV infection
     Route: 048
  35. RALTEGRAVIR POTASSIUM [Concomitant]
     Active Substance: RALTEGRAVIR POTASSIUM
     Indication: HIV infection
     Dosage: UNK
  36. RALTEGRAVIR POTASSIUM [Concomitant]
     Active Substance: RALTEGRAVIR POTASSIUM
     Route: 048
  37. RALTEGRAVIR POTASSIUM [Concomitant]
     Active Substance: RALTEGRAVIR POTASSIUM
     Route: 048
  38. RALTEGRAVIR [Concomitant]
     Active Substance: RALTEGRAVIR
     Indication: HIV infection
     Dosage: UNK
  39. RALTEGRAVIR [Concomitant]
     Active Substance: RALTEGRAVIR
     Route: 048
  40. PREZISTA [Concomitant]
     Active Substance: DARUNAVIR ETHANOLATE
     Indication: HIV infection
     Route: 048
  41. NORVIR [Concomitant]
     Active Substance: RITONAVIR
     Indication: Antiretroviral therapy
     Dosage: UNK
     Route: 048
  42. NORVIR [Concomitant]
     Active Substance: RITONAVIR
     Indication: HIV infection
  43. NEVIRAPINE [Concomitant]
     Active Substance: NEVIRAPINE
     Indication: HIV infection
     Dosage: UNK
     Route: 048
  44. NEVIRAPINE [Concomitant]
     Active Substance: NEVIRAPINE
     Dosage: UNK
     Route: 048
  45. NEVIRAPINE [Concomitant]
     Active Substance: NEVIRAPINE
     Route: 048
  46. NELFINAVIR MESYLATE [Concomitant]
     Active Substance: NELFINAVIR MESYLATE
     Indication: HIV infection
     Route: 048
  47. NELFINAVIR MESYLATE [Concomitant]
     Active Substance: NELFINAVIR MESYLATE
     Route: 048
  48. LOPINAVIR [Concomitant]
     Active Substance: LOPINAVIR
     Indication: HIV infection
     Dosage: UNK
  49. LOPINAVIR AND RITONAVIR [Concomitant]
     Active Substance: LOPINAVIR\RITONAVIR
     Indication: HIV infection
     Dosage: UNK
  50. LAMIVUDINE [Concomitant]
     Active Substance: LAMIVUDINE
     Indication: HIV infection
     Dosage: UNK
     Route: 048
  51. LAMIVUDINE [Concomitant]
     Active Substance: LAMIVUDINE
     Dosage: UNK
  52. LAMIVUDINE [Concomitant]
     Active Substance: LAMIVUDINE
     Dosage: UNK
  53. KALETRA [Concomitant]
     Active Substance: LOPINAVIR\RITONAVIR
     Indication: HIV infection
     Route: 048
  54. KALETRA [Concomitant]
     Active Substance: LOPINAVIR\RITONAVIR
     Route: 048
  55. ISENTRESS [Concomitant]
     Active Substance: RALTEGRAVIR POTASSIUM
     Indication: HIV infection
     Dosage: 400 MG, UNK
     Route: 048
  56. INTELENCE [Concomitant]
     Active Substance: ETRAVIRINE
     Indication: HIV infection
     Route: 048
  57. INDINAVIR SULFATE [Concomitant]
     Active Substance: INDINAVIR SULFATE
     Indication: HIV infection
     Dosage: UNK
     Route: 048
  58. FUZEON [Concomitant]
     Active Substance: ENFUVIRTIDE
     Indication: Product used for unknown indication
     Route: 058
  59. ETRAVIRINE [Concomitant]
     Active Substance: ETRAVIRINE
     Indication: HIV infection
     Dosage: UNK
     Route: 048
  60. ETRAVIRINE [Concomitant]
     Active Substance: ETRAVIRINE
     Indication: Antiretroviral therapy
  61. ENFUVIRTIDE [Concomitant]
     Active Substance: ENFUVIRTIDE
     Indication: HIV infection
     Dosage: UNK
     Route: 058
  62. ENFUVIRTIDE [Concomitant]
     Active Substance: ENFUVIRTIDE
     Route: 058
  63. DELAVIRDINE MESYLATE [Concomitant]
     Active Substance: DELAVIRDINE MESYLATE
     Indication: HIV infection
     Dosage: UNK
     Route: 048
  64. DELAVIRDINE MESYLATE [Concomitant]
     Active Substance: DELAVIRDINE MESYLATE
  65. ABACAVIR SULFATE [Concomitant]
     Active Substance: ABACAVIR SULFATE
     Indication: Antiretroviral therapy
     Dosage: UNK
     Route: 048
     Dates: start: 200802
  66. ABACAVIR SULFATE [Concomitant]
     Active Substance: ABACAVIR SULFATE
     Indication: HIV infection
  67. DARUNAVIR [Concomitant]
     Active Substance: DARUNAVIR
     Indication: Antiretroviral therapy
     Dosage: UNK
  68. DARUNAVIR [Concomitant]
     Active Substance: DARUNAVIR
     Indication: HIV infection
  69. ABACAVIR SUCCINATE [Concomitant]
     Active Substance: ABACAVIR SUCCINATE
     Indication: HIV infection
     Route: 048
  70. DARUNAVIR ETHANOLATE [Concomitant]
     Active Substance: DARUNAVIR ETHANOLATE
     Indication: HIV infection
     Route: 048
  71. DARUNAVIR ETHANOLATE [Concomitant]
     Active Substance: DARUNAVIR ETHANOLATE
     Route: 048

REACTIONS (7)
  - Diplopia [Recovering/Resolving]
  - Eyelid ptosis [Recovering/Resolving]
  - Lipodystrophy acquired [Recovering/Resolving]
  - Mitochondrial toxicity [Recovering/Resolving]
  - Ophthalmoplegia [Recovering/Resolving]
  - Blood lactic acid increased [Not Recovered/Not Resolved]
  - Dysphagia [Not Recovered/Not Resolved]
